FAERS Safety Report 8495816-9 (Version None)
Quarter: 2012Q3

REPORT INFORMATION
  Report Type: 
  Country: None (occurrence: None)
  Receive Date: 20120709
  Receipt Date: 20120702
  Transmission Date: 20120928
  Serious: Yes (Other)
  Sender: FDA-Public Use
  Company Number: PHHY2012MX057681

PATIENT

DRUGS (2)
  1. ONBREZ [Suspect]
     Indication: CHRONIC OBSTRUCTIVE PULMONARY DISEASE
     Dosage: 150 UG, DAILY
     Dates: start: 20120401
  2. THEOPHYLLINE [Concomitant]
     Dosage: 2 DF, DAILY
     Dates: start: 20090101

REACTIONS (1)
  - MALAISE [None]
